FAERS Safety Report 7161294-5 (Version None)
Quarter: 2010Q4

REPORT INFORMATION
  Report Type: 
  Country: None (occurrence: None)
  Receive Date: 20101215
  Receipt Date: 20101207
  Transmission Date: 20110411
  Serious: Yes (Hospitalization)
  Sender: FDA-Public Use
  Company Number: US-US-EMD SERONO, INC.-7031105

PATIENT
  Sex: Female

DRUGS (1)
  1. REBIF [Suspect]
     Indication: MULTIPLE SCLEROSIS
     Route: 058
     Dates: start: 20071205, end: 20100401

REACTIONS (3)
  - CENTRAL NERVOUS SYSTEM VIRAL INFECTION [None]
  - FALL [None]
  - MULTIPLE SCLEROSIS RELAPSE [None]
